FAERS Safety Report 10280094 (Version 1)
Quarter: 2014Q3

REPORT INFORMATION
  Report Type: Spontaneous
  Country: US (occurrence: US)
  Receive Date: 20140707
  Receipt Date: 20140707
  Transmission Date: 20150326
  Serious: Yes (Hospitalization)
  Sender: FDA-Public Use
  Company Number: US-JNJFOC-20140618190

PATIENT
  Age: 43 Year
  Sex: Female

DRUGS (4)
  1. VALPROATE SODIUM. [Suspect]
     Active Substance: VALPROATE SODIUM
     Indication: AGITATION
     Dosage: FIRST DOSE RECEIVED ON DAY 31,, AND DOSE REDUCED ON DAY 69
     Route: 048
  2. HALOPERIDOL. [Suspect]
     Active Substance: HALOPERIDOL
     Indication: AGITATION
     Dosage: FIRST DOSE ON DAY 31, LAST DOSE ON DAY 69
     Route: 030
  3. HALOPERIDOL. [Suspect]
     Active Substance: HALOPERIDOL
     Indication: AFFECT LABILITY
     Dosage: FIRST DOSE ON DAY 31, LAST DOSE ON DAY 69
     Route: 030
  4. VALPROATE SODIUM. [Suspect]
     Active Substance: VALPROATE SODIUM
     Indication: AGITATION
     Route: 048

REACTIONS (3)
  - Affect lability [Recovering/Resolving]
  - Agitation [Recovering/Resolving]
  - Drug ineffective [Unknown]
